FAERS Safety Report 7576558-0 (Version None)
Quarter: 2011Q2

REPORT INFORMATION
  Report Type: 
  Country: None (occurrence: None)
  Receive Date: 20110628
  Receipt Date: 20110608
  Transmission Date: 20111010
  Serious: Yes (Hospitalization, Other)
  Sender: FDA-Public Use
  Company Number: US-BAYER-201039224NA

PATIENT
  Age: 30 Year
  Sex: Female
  Weight: 65.85 kg

DRUGS (8)
  1. YAZ [Suspect]
     Indication: ACNE
  2. HEPARIN [Concomitant]
     Dosage: UNK
     Dates: start: 20090901
  3. LOVENOX [Concomitant]
     Dosage: UNK
     Dates: start: 20090901
  4. ONDANSETRON [Concomitant]
     Dosage: UNK
     Dates: start: 20090901
  5. VICODIN [Concomitant]
     Dosage: UNK
     Dates: start: 20090901
  6. YAZ [Suspect]
     Indication: CONTRACEPTION
     Dosage: UNK UNK, QD
     Route: 048
     Dates: start: 20090209, end: 20090901
  7. IBUPROFEN [Concomitant]
     Dosage: UNK UNK, PRN
     Dates: start: 20090901
  8. COUMADIN [Concomitant]
     Dosage: UNK
     Dates: start: 20090901

REACTIONS (2)
  - THROMBOSIS [None]
  - ARTERIAL THROMBOSIS LIMB [None]
